FAERS Safety Report 15331502 (Version 16)
Quarter: 2024Q4

REPORT INFORMATION
  Report Type: Report from Study
  Country: US (occurrence: US)
  Receive Date: 20180829
  Receipt Date: 20241112
  Transmission Date: 20250115
  Serious: Yes (Hospitalization, Other)
  Sender: TAKEDA
  Company Number: US-TAKEDA-2018TUS025703

PATIENT
  Age: 65 Year
  Sex: Male

DRUGS (28)
  1. PONATINIB [Suspect]
     Active Substance: PONATINIB
     Indication: Acute lymphocytic leukaemia
     Dosage: 30 MILLIGRAM, QD
     Dates: start: 201807
  2. PONATINIB [Suspect]
     Active Substance: PONATINIB
     Dosage: 15 MILLIGRAM, QD
  3. PONATINIB [Suspect]
     Active Substance: PONATINIB
     Dosage: 15 MILLIGRAM, QD
  4. PONATINIB [Suspect]
     Active Substance: PONATINIB
     Dosage: 15 MILLIGRAM, QD
  5. PONATINIB [Suspect]
     Active Substance: PONATINIB
     Dosage: 15 MILLIGRAM, QD
  6. PONATINIB [Suspect]
     Active Substance: PONATINIB
     Dosage: 15 MILLIGRAM, QD
  7. PONATINIB [Suspect]
     Active Substance: PONATINIB
     Dosage: 15 MILLIGRAM, QD
  8. PONATINIB [Suspect]
     Active Substance: PONATINIB
     Dosage: 10 MILLIGRAM, QD
  9. PONATINIB [Suspect]
     Active Substance: PONATINIB
     Dosage: 10 MILLIGRAM, QD
  10. PREDNISONE [Suspect]
     Active Substance: PREDNISONE
     Indication: Product used for unknown indication
     Dosage: UNK
  11. BACTRIM [Concomitant]
     Active Substance: SULFAMETHOXAZOLE\TRIMETHOPRIM
     Dosage: UNK
  12. ACYCLOVIR [Concomitant]
     Active Substance: ACYCLOVIR
     Dosage: UNK
  13. LEXAPRO [Concomitant]
     Active Substance: ESCITALOPRAM OXALATE
     Dosage: UNK
  14. LOSARTAN POTASSIUM [Concomitant]
     Active Substance: LOSARTAN POTASSIUM
     Dosage: UNK
  15. XANAX [Concomitant]
     Active Substance: ALPRAZOLAM
     Dosage: UNK
  16. IBUPROFEN [Concomitant]
     Active Substance: IBUPROFEN
     Dosage: UNK
  17. DOXYCYCLINE [Concomitant]
     Active Substance: DOXYCYCLINE
     Dosage: UNK
  18. DICLOFENAC SODIUM [Concomitant]
     Active Substance: DICLOFENAC SODIUM
     Dosage: UNK
  19. FLOMAX [Concomitant]
     Active Substance: TAMSULOSIN HYDROCHLORIDE
     Dosage: UNK
  20. SUMATRIPTAN SUCCINATE [Concomitant]
     Active Substance: SUMATRIPTAN SUCCINATE
     Dosage: UNK
  21. ACETAMINOPHEN [Concomitant]
     Active Substance: ACETAMINOPHEN
     Dosage: UNK
  22. AMITRIPTYLINE HYDROCHLORIDE [Concomitant]
     Active Substance: AMITRIPTYLINE HYDROCHLORIDE
     Dosage: UNK
  23. DOXYCYCLINE HYCLATE [Concomitant]
     Active Substance: DOXYCYCLINE HYCLATE
     Dosage: UNK
  24. METRONIDAZOLE [Concomitant]
     Active Substance: METRONIDAZOLE
     Dosage: UNK
  25. AMLODIPINE BESYLATE [Concomitant]
     Active Substance: AMLODIPINE BESYLATE
     Dosage: UNK
  26. ASPIRIN [Concomitant]
     Active Substance: ASPIRIN
     Dosage: UNK
  27. XDEMVY [Concomitant]
     Active Substance: LOTILANER
     Dosage: UNK
  28. DOPAMINE HYDROCHLORIDE AND DEXTROSE [Concomitant]
     Active Substance: DOPAMINE HYDROCHLORIDE
     Dosage: UNK

REACTIONS (53)
  - Parkinson^s disease [Unknown]
  - Blood pressure abnormal [Unknown]
  - Gait inability [Unknown]
  - Urinary incontinence [Unknown]
  - Incoherent [Unknown]
  - Confusional state [Unknown]
  - Neuropathy peripheral [Unknown]
  - Cataract [Unknown]
  - Muscular weakness [Unknown]
  - Pyrexia [Unknown]
  - Product dose omission issue [Unknown]
  - Arthritis [Unknown]
  - Panic attack [Unknown]
  - Blood pressure decreased [Unknown]
  - Cardiac disorder [Unknown]
  - Renal cyst [Unknown]
  - Tendon disorder [Unknown]
  - Balance disorder [Not Recovered/Not Resolved]
  - Quality of life decreased [Unknown]
  - Fall [Unknown]
  - Rash maculo-papular [Unknown]
  - Feeling abnormal [Unknown]
  - Feeling of body temperature change [Unknown]
  - Nasopharyngitis [Unknown]
  - White blood cell count decreased [Unknown]
  - Blood pressure increased [Unknown]
  - Weight increased [Unknown]
  - Chest discomfort [Unknown]
  - Abdominal distension [Unknown]
  - Vision blurred [Unknown]
  - Pain in extremity [Unknown]
  - Back pain [Unknown]
  - Chest pain [Unknown]
  - Abdominal pain upper [Unknown]
  - Palpitations [Unknown]
  - Migraine [Unknown]
  - Abdominal discomfort [Unknown]
  - Dry eye [Unknown]
  - Rash erythematous [Unknown]
  - Flushing [Unknown]
  - Impaired healing [Unknown]
  - Rash [Unknown]
  - Dizziness [Unknown]
  - Visual impairment [Unknown]
  - Headache [Unknown]
  - Pain [Unknown]
  - Ejection fraction decreased [Unknown]
  - Arthralgia [Unknown]
  - Dyspnoea [Not Recovered/Not Resolved]
  - Asthenia [Unknown]
  - Constipation [Unknown]
  - Hypertension [Unknown]
  - Fatigue [Unknown]

NARRATIVE: CASE EVENT DATE: 20190712
